FAERS Safety Report 8613734 (Version 3)
Quarter: 2013Q1

REPORT INFORMATION
  Report Type: Spontaneous
  Country: US (occurrence: US)
  Receive Date: 20120614
  Receipt Date: 20130220
  Transmission Date: 20140127
  Serious: Yes (Other)
  Sender: FDA-Public Use
  Company Number: US-TEVA-342032USA

PATIENT
  Sex: Male

DRUGS (4)
  1. AZILECT [Suspect]
     Indication: PARKINSON^S DISEASE
     Route: 048
     Dates: start: 20111005, end: 20120607
  2. ENTACAPONE [Concomitant]
  3. LIPITOR [Concomitant]
  4. SINEMET [Concomitant]
     Dosage: 25/250MG

REACTIONS (1)
  - Blindness transient [Recovered/Resolved]
